FAERS Safety Report 22087328 (Version 6)
Quarter: 2023Q2

REPORT INFORMATION
  Report Type: Report from Study
  Country: US (occurrence: US)
  Receive Date: 20230313
  Receipt Date: 20230522
  Transmission Date: 20230722
  Serious: Yes (Hospitalization, Other)
  Sender: FDA-Public Use
  Company Number: US-002147023-NVSC2023US052822

PATIENT
  Age: 64 Year
  Sex: Male

DRUGS (5)
  1. ENTRESTO [Suspect]
     Active Substance: SACUBITRIL\VALSARTAN
     Indication: Product used for unknown indication
     Dosage: 1 DOSAGE FORM, BID
     Route: 048
     Dates: start: 20230301, end: 20230313
  2. ENTRESTO [Suspect]
     Active Substance: SACUBITRIL\VALSARTAN
     Dosage: 1 DOSAGE FORM, QD
     Route: 048
  3. LOSARTAN [Suspect]
     Active Substance: LOSARTAN
     Indication: Product used for unknown indication
     Dosage: UNK
     Route: 065
  4. LOSARTAN [Suspect]
     Active Substance: LOSARTAN
     Dosage: 25 MG, QD
     Route: 065
  5. COSENTYX [Suspect]
     Active Substance: SECUKINUMAB
     Indication: Product used for unknown indication
     Dosage: UNK
     Route: 065

REACTIONS (20)
  - Fluid retention [Unknown]
  - Loss of consciousness [Unknown]
  - Cardiac failure [Unknown]
  - Cough [Unknown]
  - Back pain [Unknown]
  - Mental fatigue [Unknown]
  - Pruritus [Recovered/Resolved]
  - Pruritus [Recovering/Resolving]
  - Somnolence [Unknown]
  - Hypoacusis [Unknown]
  - Memory impairment [Not Recovered/Not Resolved]
  - Asthma [Unknown]
  - Dyspnoea exertional [Recovering/Resolving]
  - Arthritis [Unknown]
  - Fall [Unknown]
  - Fatigue [Unknown]
  - Productive cough [Unknown]
  - Prescribed underdose [Unknown]
  - Product use issue [Unknown]
  - Contraindicated product administered [Unknown]

NARRATIVE: CASE EVENT DATE: 20210814
